FAERS Safety Report 9689542 (Version 6)
Quarter: 2016Q4

REPORT INFORMATION
  Report Type: Report from Study
  Country: BR (occurrence: BR)
  Receive Date: 20131115
  Receipt Date: 20161120
  Transmission Date: 20170207
  Serious: Yes (Other)
  Sender: FDA-Public Use
  Company Number: BR-ROCHE-1302698

PATIENT
  Age: 49 Year
  Sex: Female

DRUGS (9)
  1. OMEPRAZOLE. [Concomitant]
     Active Substance: OMEPRAZOLE
  2. INSULIN HUMAN [Concomitant]
     Active Substance: INSULIN HUMAN
     Route: 065
     Dates: start: 201303
  3. BUSONID [Concomitant]
     Active Substance: BUDESONIDE
  4. XOLAIR [Suspect]
     Active Substance: OMALIZUMAB
     Indication: ASTHMA
     Dosage: 2 AMPOULES
     Route: 042
     Dates: start: 201105
  5. XOLAIR [Suspect]
     Active Substance: OMALIZUMAB
     Indication: LUNG DISORDER
     Dosage: ONE AMPOULE AND HALF
     Route: 058
     Dates: start: 20110504
  6. FORASEQ (BRAZIL) [Concomitant]
     Active Substance: BUDESONIDE\FORMOTEROL FUMARATE
  7. METICORTEN [Concomitant]
     Active Substance: PREDNISONE
  8. SYMBICORT [Concomitant]
     Active Substance: BUDESONIDE\FORMOTEROL FUMARATE DIHYDRATE
  9. SALBUTAMOL [Concomitant]
     Active Substance: ALBUTEROL

REACTIONS (17)
  - Drug dependence [Unknown]
  - Fall [Unknown]
  - Somnolence [Recovered/Resolved]
  - Drug administration error [Unknown]
  - Incorrect route of drug administration [Unknown]
  - Product use issue [Unknown]
  - Face injury [Recovered/Resolved]
  - Asthmatic crisis [Recovered/Resolved]
  - Malaise [Unknown]
  - Secretion discharge [Not Recovered/Not Resolved]
  - Osteoarthritis [Recovered/Resolved]
  - Lung infection [Unknown]
  - Vision blurred [Recovered/Resolved]
  - Infection [Recovering/Resolving]
  - Dizziness [Unknown]
  - Periorbital haematoma [Recovered/Resolved]
  - Weight decreased [Unknown]

NARRATIVE: CASE EVENT DATE: 201311
